FAERS Safety Report 12183244 (Version 3)
Quarter: 2016Q2

REPORT INFORMATION
  Report Type: Spontaneous
  Country: BG (occurrence: BG)
  Receive Date: 20160316
  Receipt Date: 20160401
  Transmission Date: 20160815
  Serious: Yes (Life-Threatening, Other)
  Sender: FDA-Public Use
  Company Number: BG-009507513-1603BGR006295

PATIENT
  Age: 76 Year
  Sex: Male

DRUGS (6)
  1. PARITAPREVIR [Suspect]
     Active Substance: PARITAPREVIR
     Indication: CHRONIC HEPATITIS C
     Dosage: UNK
     Dates: start: 20150108, end: 2015
  2. RIBAVIRIN. [Suspect]
     Active Substance: RIBAVIRIN
     Indication: CHRONIC HEPATITIS C
     Dosage: 1000 MG, DAILY
     Route: 048
     Dates: start: 20150108, end: 2015
  3. DASABUVIR [Suspect]
     Active Substance: DASABUVIR
     Indication: CHRONIC HEPATITIS C
     Dosage: UNK
     Dates: start: 20150108, end: 2015
  4. INSULIN [Concomitant]
     Active Substance: INSULIN NOS
     Indication: TYPE 2 DIABETES MELLITUS
     Dosage: UNK
     Dates: start: 2008
  5. OMBITASVIR [Suspect]
     Active Substance: OMBITASVIR
     Indication: CHRONIC HEPATITIS C
     Dosage: UNK
     Dates: start: 20150108, end: 2015
  6. RITONAVIR. [Suspect]
     Active Substance: RITONAVIR
     Indication: CHRONIC HEPATITIS C
     Dosage: UNK
     Dates: start: 20150108, end: 2015

REACTIONS (3)
  - Alanine aminotransferase increased [Recovered/Resolved]
  - Hyperbilirubinaemia [Recovered/Resolved]
  - Prothrombin time prolonged [Recovered/Resolved]

NARRATIVE: CASE EVENT DATE: 2015
